FAERS Safety Report 5150619-8 (Version None)
Quarter: 2006Q4

REPORT INFORMATION
  Report Type: 
  Country: None (occurrence: None)
  Receive Date: 20061114
  Receipt Date: 20061108
  Transmission Date: 20070319
  Serious: Yes (Death, Life-Threatening, Hospitalization)
  Sender: FDA-Public Use
  Company Number: 2006PK02302

PATIENT
  Age: 59 Year
  Sex: Female

DRUGS (6)
  1. SEROQUEL [Suspect]
     Route: 048
     Dates: start: 20060728, end: 20060803
  2. SEROQUEL [Suspect]
     Route: 048
     Dates: start: 20060804, end: 20060806
  3. FRAGMIN [Concomitant]
     Indication: THROMBOSIS PROPHYLAXIS
     Route: 058
  4. MADOPAR [Concomitant]
     Route: 048
     Dates: start: 20060726, end: 20060730
  5. MADOPAR [Concomitant]
     Route: 048
     Dates: start: 20060731, end: 20060801
  6. MADOPAR [Concomitant]
     Route: 048
     Dates: start: 20060802, end: 20060806

REACTIONS (2)
  - CEREBRAL INFARCTION [None]
  - LOSS OF CONSCIOUSNESS [None]
